FAERS Safety Report 9267734 (Version 1)
Quarter: 2013Q2

REPORT INFORMATION
  Report Type: Spontaneous
  Country: CZ (occurrence: CZ)
  Receive Date: 20130502
  Receipt Date: 20130502
  Transmission Date: 20140414
  Serious: Yes (Other)
  Sender: FDA-Public Use
  Company Number: CZ-PFIZER INC-2013134865

PATIENT
  Age: 62 Year
  Sex: Male

DRUGS (2)
  1. RAMIPRIL [Suspect]
     Indication: HYPERTENSION
     Dosage: 10 MG, DAILY
     Route: 048
  2. THYROXIN [Concomitant]
     Indication: GOITRE
     Dosage: UNK

REACTIONS (2)
  - Pulmonary congestion [Recovered/Resolved]
  - Cough [Recovered/Resolved]
